FAERS Safety Report 18041577 (Version 9)
Quarter: 2020Q4

REPORT INFORMATION
  Report Type: Spontaneous
  Country: CA (occurrence: CA)
  Receive Date: 20200720
  Receipt Date: 20201209
  Transmission Date: 20210113
  Serious: Yes (Other)
  Sender: FDA-Public Use
  Company Number: CA-CELLTRION INC.-2020CA024164

PATIENT

DRUGS (13)
  1. INFLECTRA [Suspect]
     Active Substance: INFLIXIMAB-DYYB
     Indication: CROHN^S DISEASE
     Dosage: 400 MG, AT 0, 2, 6 WEEKS, THEN EVERY 8 WEEKS
     Route: 042
     Dates: start: 20200617, end: 20200617
  2. PREDNISONE. [Concomitant]
     Active Substance: PREDNISONE
     Dosage: 40 MG, 1X/DAY
     Route: 065
     Dates: start: 20200527
  3. DIPHENHYDRAMINE. [Concomitant]
     Active Substance: DIPHENHYDRAMINE
     Dosage: 25 MG
     Dates: start: 20200903, end: 20200903
  4. INFLECTRA [Suspect]
     Active Substance: INFLIXIMAB-DYYB
     Dosage: 700 MG,  EVERY 4 WEEKS
     Route: 042
     Dates: start: 20200903, end: 20200903
  5. INFLECTRA [Suspect]
     Active Substance: INFLIXIMAB-DYYB
     Dosage: 800 MG (10 MG/KG) EVERY 4 WEEKS
     Route: 042
     Dates: start: 20200710, end: 20200710
  6. ACETAMINOPHEN. [Concomitant]
     Active Substance: ACETAMINOPHEN
     Indication: PREMEDICATION
     Dosage: 325 MG
     Dates: start: 20200710, end: 20200710
  7. METHYLPREDNISOLONE. [Concomitant]
     Active Substance: METHYLPREDNISOLONE
     Dosage: 30 MG
     Dates: start: 20200903, end: 20200903
  8. METHYLPREDNISOLONE. [Concomitant]
     Active Substance: METHYLPREDNISOLONE
     Indication: PREMEDICATION
     Dosage: 30 MG
     Dates: start: 20200710, end: 20200710
  9. INFLECTRA [Suspect]
     Active Substance: INFLIXIMAB-DYYB
     Dosage: 400 MG, EVERY 6 WEEKS
     Route: 042
  10. DIPHENHYDRAMINE. [Concomitant]
     Active Substance: DIPHENHYDRAMINE
     Indication: PREMEDICATION
     Dosage: 25 MG
     Dates: start: 20200710, end: 20200710
  11. ACETAMINOPHEN. [Concomitant]
     Active Substance: ACETAMINOPHEN
     Dosage: 325 MG
     Dates: start: 20200903, end: 20200903
  12. INFLECTRA [Suspect]
     Active Substance: INFLIXIMAB-DYYB
     Dosage: 400 MG, AT 0, 2, 6 WEEKS, THEN EVERY 8 WEEKS
     Route: 042
     Dates: start: 20200630, end: 20200630
  13. INFLECTRA [Suspect]
     Active Substance: INFLIXIMAB-DYYB
     Dosage: 400 MG, EVERY 6 WEEKS
     Route: 042
     Dates: start: 20201130

REACTIONS (18)
  - Pain [Unknown]
  - Condition aggravated [Unknown]
  - Poor venous access [Recovered/Resolved]
  - Inappropriate schedule of product administration [Unknown]
  - Blood pressure increased [Unknown]
  - Eosinophilia [Unknown]
  - Infection [Unknown]
  - Off label use [Unknown]
  - Contusion [Unknown]
  - Cough [Unknown]
  - Lymphocytosis [Unknown]
  - Vitamin D decreased [Unknown]
  - Body temperature decreased [Unknown]
  - Chest discomfort [Unknown]
  - White blood cell count increased [Unknown]
  - Mouth ulceration [Unknown]
  - Neutrophil count increased [Unknown]
  - Incorrect dose administered [Unknown]

NARRATIVE: CASE EVENT DATE: 2020
